FAERS Safety Report 9117757 (Version 2)
Quarter: 2013Q4

REPORT INFORMATION
  Report Type: Spontaneous
  Country: GB (occurrence: GB)
  Receive Date: 20130225
  Receipt Date: 20131010
  Transmission Date: 20140711
  Serious: Yes (Hospitalization, Disabling)
  Sender: FDA-Public Use
  Company Number: GB-RANBAXY-2013R1-65312

PATIENT
  Age: 18 Year
  Sex: Female

DRUGS (5)
  1. AMITRIPTYLINE [Suspect]
     Indication: HEADACHE
     Dosage: UNK
     Route: 048
     Dates: start: 20120112, end: 20120215
  2. FLUOXETINE [Suspect]
     Indication: DEPRESSION
     Dosage: UNK
     Route: 048
     Dates: start: 20111005, end: 20121220
  3. NORTRIPTYLINE [Suspect]
     Indication: HEADACHE
     Dosage: UNK
     Route: 048
     Dates: end: 20121122
  4. LANSOPRAZOLE [Concomitant]
     Indication: GASTROOESOPHAGEAL REFLUX DISEASE
     Dosage: UNK
     Route: 048
     Dates: start: 20120413, end: 20130123
  5. LAXIDO [Concomitant]
     Indication: CONSTIPATION
     Dosage: 1 DF, PRN
     Route: 048
     Dates: start: 20120509, end: 20130123

REACTIONS (4)
  - Syncope [Recovered/Resolved]
  - Gastrooesophageal reflux disease [Recovered/Resolved]
  - Dizziness [Recovered/Resolved]
  - Muscular weakness [Recovered/Resolved]
